FAERS Safety Report 9813484 (Version 1)
Quarter: 2014Q1

REPORT INFORMATION
  Report Type: Spontaneous
  Country: US (occurrence: None)
  Receive Date: 20140109
  Receipt Date: 20140109
  Transmission Date: 20141002
  Serious: Yes (Hospitalization, Other)
  Sender: FDA-Public Use
  Company Number: PL-AE13-000188

PATIENT
  Age: 67 Year
  Sex: Female

DRUGS (4)
  1. CHIORASEPTIC [Suspect]
     Indication: ORAL PAIN
     Dosage: UNK, UNK, ORAL
     Route: 048
     Dates: start: 20131219, end: 20131219
  2. CHIORASEPTIC [Suspect]
     Indication: OROPHARYNGEAL PAIN
     Dosage: UNK, UNK, ORAL
     Route: 048
     Dates: start: 20131219, end: 20131219
  3. PHENERGAN (PROMETHAZINE) [Concomitant]
  4. MUCINEX {GUAIFENSEIN} [Concomitant]

REACTIONS (4)
  - Dyspnoea [None]
  - Urticaria [None]
  - Swelling face [None]
  - Swelling [None]
